FAERS Safety Report 12522848 (Version 1)
Quarter: 2016Q3

REPORT INFORMATION
  Report Type: Spontaneous
  Country: FR (occurrence: FR)
  Receive Date: 20160701
  Receipt Date: 20160701
  Transmission Date: 20161109
  Serious: Yes (Disabling, Other)
  Sender: FDA-Public Use
  Company Number: FR-BRISTOL-MYERS SQUIBB COMPANY-10439594

PATIENT
  Age: 36 Year
  Sex: Female

DRUGS (4)
  1. VIRACEPT [Suspect]
     Active Substance: NELFINAVIR MESYLATE
     Indication: HIV TEST POSITIVE
     Dosage: UNK
     Route: 065
     Dates: start: 19980416
  2. EPIVIR [Suspect]
     Active Substance: LAMIVUDINE
     Indication: HIV TEST POSITIVE
     Dosage: UNK
     Route: 065
     Dates: start: 19971207
  3. ZERIT [Suspect]
     Active Substance: STAVUDINE
     Indication: HIV TEST POSITIVE
     Dosage: UNK
     Route: 048
     Dates: start: 19980416
  4. BACTRIM [Concomitant]
     Active Substance: SULFAMETHOXAZOLE\TRIMETHOPRIM
     Indication: PRODUCT USED FOR UNKNOWN INDICATION
     Dosage: UNK
     Route: 065
     Dates: start: 19971207

REACTIONS (1)
  - Osteonecrosis [Not Recovered/Not Resolved]

NARRATIVE: CASE EVENT DATE: 19990401
